FAERS Safety Report 6140534-5 (Version None)
Quarter: 2009Q2

REPORT INFORMATION
  Report Type: 
  Country: None (occurrence: None)
  Receive Date: 20090402
  Receipt Date: 20090321
  Transmission Date: 20091009
  Serious: Yes (Hospitalization)
  Sender: FDA-Public Use
  Company Number: US-PFIZER INC-2005121563

PATIENT
  Sex: Female

DRUGS (1)
  1. SUNITINIB MALATE [Suspect]
     Indication: GASTROINTESTINAL STROMAL TUMOUR
     Dosage: CYCLIC DAILY: 4 WEEKS ON/2 WEEKS OFF
     Route: 048
     Dates: start: 20050603, end: 20050921

REACTIONS (1)
  - ABDOMINAL WALL ABSCESS [None]
